FAERS Safety Report 14710082 (Version 9)
Quarter: 2018Q2

REPORT INFORMATION
  Report Type: Report from Study
  Country: JP (occurrence: JP)
  Receive Date: 20180403
  Receipt Date: 20180613
  Transmission Date: 20180711
  Serious: Yes (Hospitalization)
  Sender: FDA-Public Use
  Company Number: JP-UCBSA-2018012718

PATIENT
  Age: 48 Year
  Sex: Female
  Weight: 56 kg

DRUGS (3)
  1. TIGASON [Concomitant]
     Active Substance: ETRETINATE
     Indication: PSORIASIS
     Dosage: 10 MG, ONCE DAILY (QD)
     Route: 048
     Dates: start: 20180219
  2. CERTOLIZUMAB PEGOL [Suspect]
     Active Substance: CERTOLIZUMAB PEGOL
     Indication: PSORIASIS
     Dosage: 400 MG, UNK
     Route: 058
     Dates: start: 20171030, end: 20180305
  3. OLOPATADINE HYDROCHLORIDE. [Concomitant]
     Active Substance: OLOPATADINE HYDROCHLORIDE
     Indication: PSORIASIS
     Dosage: 5 MG, BEDTIME
     Route: 048
     Dates: start: 20110316

REACTIONS (1)
  - Erythema multiforme [Recovered/Resolved]

NARRATIVE: CASE EVENT DATE: 20180319
